FAERS Safety Report 10527521 (Version 1)
Quarter: 2014Q4

REPORT INFORMATION
  Report Type: Spontaneous
  Country: KZ (occurrence: None)
  Receive Date: 20141016
  Receipt Date: 20141016
  Transmission Date: 20150528
  Serious: Yes (Hospitalization)
  Sender: FDA-Public Use
  Company Number: KZ2014GSK001002

PATIENT
  Age: 32 Year
  Sex: Male
  Weight: 54 kg

DRUGS (1)
  1. TRIZIVIR [Suspect]
     Active Substance: ABACAVIR SULFATE\LAMIVUDINE\ZIDOVUDINE
     Indication: HIV INFECTION
     Dosage: 1 UNK, BID, ORAL
     Route: 048
     Dates: start: 20140218, end: 20140406

REACTIONS (9)
  - Skin exfoliation [None]
  - Body temperature increased [None]
  - Herpes virus infection [None]
  - Drug resistance [None]
  - Palmar erythema [None]
  - Swollen tongue [None]
  - Headache [None]
  - Hypoaesthesia oral [None]
  - Rash [None]

NARRATIVE: CASE EVENT DATE: 20140306
